FAERS Safety Report 10891706 (Version 3)
Quarter: 2015Q1

REPORT INFORMATION
  Report Type: Report from Study
  Country: US (occurrence: US)
  Receive Date: 20150306
  Receipt Date: 20150310
  Transmission Date: 20150721
  Serious: Yes (Hospitalization)
  Sender: FDA-Public Use
  Company Number: US-SA-2013SA124207

PATIENT
  Age: 47 Year
  Sex: Female
  Weight: 150 kg

DRUGS (12)
  1. AUBAGIO [Suspect]
     Active Substance: TERIFLUNOMIDE
     Indication: MULTIPLE SCLEROSIS
     Route: 048
     Dates: start: 20131120, end: 20140401
  2. ASPIRIN. [Concomitant]
     Active Substance: ASPIRIN
  3. ROPINIROLE. [Concomitant]
     Active Substance: ROPINIROLE
     Indication: RESTLESS LEGS SYNDROME
     Dosage: STRENGTH: 0.5 MG?TAKEN AT NIGHT
     Dates: start: 2004
  4. NORTRIPTYLINE [Concomitant]
     Active Substance: NORTRIPTYLINE
     Indication: PAIN MANAGEMENT
     Dosage: STRENGTH: 25 MG?TAKEN AT NIGHT
     Dates: start: 2004
  5. CELEBREX [Concomitant]
     Active Substance: CELECOXIB
     Dates: start: 2014
  6. AUBAGIO [Suspect]
     Active Substance: TERIFLUNOMIDE
     Indication: MULTIPLE SCLEROSIS
     Route: 048
     Dates: start: 201405
  7. NORCO [Concomitant]
     Active Substance: ACETAMINOPHEN\HYDROCODONE BITARTRATE
     Indication: PAIN MANAGEMENT
     Dosage: STRENGTH: 10/325 MG
     Dates: start: 2004
  8. AUBAGIO [Suspect]
     Active Substance: TERIFLUNOMIDE
     Indication: MULTIPLE SCLEROSIS
     Route: 048
     Dates: start: 20131120, end: 20140401
  9. STOOL SOFTENER [Concomitant]
     Active Substance: DOCUSATE CALCIUM
     Indication: CONSTIPATION
     Dosage: STRENGTH: 50 MG
     Dates: start: 2004
  10. ASPIRIN ^BAYER^ [Concomitant]
     Active Substance: ASPIRIN
     Dosage: STRENGTH: 325 MG?TAKEN AT NIGHT
     Dates: start: 2013
  11. VITAMIN D3 [Concomitant]
     Active Substance: CHOLECALCIFEROL
     Indication: MULTIPLE SCLEROSIS
     Dosage: 1 NIGHT
  12. BACLOFEN. [Concomitant]
     Active Substance: BACLOFEN

REACTIONS (28)
  - Faecal incontinence [Unknown]
  - Blood triglycerides increased [Recovered/Resolved]
  - Muscle twitching [Unknown]
  - Dysphagia [Unknown]
  - Oral pain [Unknown]
  - Vision blurred [Unknown]
  - Sinusitis [Not Recovered/Not Resolved]
  - Sleep disorder [Recovered/Resolved]
  - Drug dose omission [Unknown]
  - Chest pain [Unknown]
  - Depression [Not Recovered/Not Resolved]
  - Multiple sclerosis relapse [Unknown]
  - Headache [Recovered/Resolved]
  - Back injury [Unknown]
  - Urinary incontinence [Unknown]
  - Burning sensation [Not Recovered/Not Resolved]
  - Fatigue [Recovered/Resolved]
  - Decreased appetite [Recovering/Resolving]
  - Peripheral swelling [Recovering/Resolving]
  - Pruritus generalised [Not Recovered/Not Resolved]
  - Back pain [Unknown]
  - Musculoskeletal pain [Unknown]
  - Nausea [Recovering/Resolving]
  - Faeces discoloured [Not Recovered/Not Resolved]
  - Urinary incontinence [Recovered/Resolved]
  - Hypoaesthesia [Recovered/Resolved]
  - Diarrhoea [Unknown]
  - Toothache [Unknown]

NARRATIVE: CASE EVENT DATE: 201311
